FAERS Safety Report 6979892-8 (Version None)
Quarter: 2010Q3

REPORT INFORMATION
  Report Type: 
  Country: None (occurrence: None)
  Receive Date: 20100909
  Receipt Date: 20100830
  Transmission Date: 20110219
  Serious: Yes (Other)
  Sender: FDA-Public Use
  Company Number: 2010JP005142

PATIENT
  Age: 71 Year
  Sex: Male
  Weight: 63 kg

DRUGS (7)
  1. TACROLIMUS [Suspect]
     Indication: LUPUS NEPHRITIS
     Dosage: 1 MG, ORAL; 3 MG, ORAL
     Route: 048
     Dates: start: 20090530, end: 20100507
  2. TACROLIMUS [Suspect]
     Indication: LUPUS NEPHRITIS
     Dosage: 1 MG, ORAL; 3 MG, ORAL
     Route: 048
     Dates: start: 20100508
  3. PREDNISOLONE [Concomitant]
  4. LOSARTAN POTASSIUM W/HYDROCHLOROTHIAZIDE (HYDROCHLOROTHIAZIDE, LOSARTA [Concomitant]
  5. ADALAT CR (NIFEDIPINE) PER ORAL NOS [Concomitant]
  6. BENET (RISEDRONATE SODIUM) PER ORAL NOS [Concomitant]
  7. PERSANTIN-L (DIPYRIDAMOLE) PER ORAL NOS [Concomitant]

REACTIONS (1)
  - SJOGREN'S SYNDROME [None]
